FAERS Safety Report 16042364 (Version 1)
Quarter: 2019Q1

REPORT INFORMATION
  Report Type: Spontaneous
  Country: US (occurrence: US)
  Receive Date: 20190306
  Receipt Date: 20190306
  Transmission Date: 20190418
  Serious: No
  Sender: FDA-Public Use
  Company Number: US-TEVA-2019-US-1009941

PATIENT
  Sex: Female

DRUGS (1)
  1. AMOXICILLIN TEVA [Suspect]
     Active Substance: AMOXICILLIN
     Indication: UPPER RESPIRATORY TRACT INFECTION
     Route: 065
     Dates: start: 201811

REACTIONS (5)
  - Product contamination [Unknown]
  - Neck pain [Unknown]
  - Product quality issue [Unknown]
  - Musculoskeletal stiffness [Unknown]
  - Headache [Unknown]
